FAERS Safety Report 8449174-6 (Version None)
Quarter: 2012Q2

REPORT INFORMATION
  Report Type: 
  Country: None (occurrence: None)
  Receive Date: 20120619
  Receipt Date: 20120615
  Transmission Date: 20120825
  Serious: Yes (Death)
  Sender: FDA-Public Use
  Company Number: US-CELGENEUS-163-21880-12062473

PATIENT
  Sex: Male

DRUGS (6)
  1. POTASSIUM ACETATE [Concomitant]
     Route: 065
  2. CEPHALEXIN [Concomitant]
     Route: 065
  3. LOSARTAN POTASSIUM [Concomitant]
     Route: 065
  4. LANTUS [Concomitant]
     Route: 065
  5. REVLIMID [Suspect]
     Dosage: 25 MILLIGRAM
     Route: 048
     Dates: start: 20111230, end: 20120101
  6. DEXAMETHASONE [Concomitant]
     Route: 065

REACTIONS (1)
  - DEATH [None]
